FAERS Safety Report 9461549 (Version 4)
Quarter: 2013Q3

REPORT INFORMATION
  Report Type: Spontaneous
  Country: FR (occurrence: FR)
  Receive Date: 20130816
  Receipt Date: 20130930
  Transmission Date: 20140515
  Serious: Yes (Death)
  Sender: FDA-Public Use
  Company Number: FR-BRISTOL-MYERS SQUIBB COMPANY-19176585

PATIENT
  Age: 6 Month
  Sex: Female

DRUGS (2)
  1. REYATAZ CAPS [Suspect]
     Route: 064
     Dates: end: 20130304
  2. COMBIVIR [Suspect]
     Route: 064
     Dates: end: 20130304

REACTIONS (1)
  - Foetal malformation [Fatal]
